FAERS Safety Report 5155884-9 (Version None)
Quarter: 2006Q4

REPORT INFORMATION
  Report Type: 
  Country: None (occurrence: None)
  Receive Date: 20061122
  Receipt Date: 20061114
  Transmission Date: 20070319
  Serious: Yes (Hospitalization)
  Sender: FDA-Public Use
  Company Number: PHNU2006DE03756

PATIENT
  Sex: Female

DRUGS (6)
  1. DIOVAN [Suspect]
     Indication: HYPERTENSION
     Dosage: 0.5 DF/D
     Dates: start: 20061102
  2. ACETYLSALICYLIC ACID SRT [Concomitant]
  3. PLAVIX [Concomitant]
  4. DIURETICS [Concomitant]
  5. HMG COA REDUCTASE INHIBITORS [Concomitant]
  6. MORPHINE [Concomitant]

REACTIONS (1)
  - VAGINAL HAEMORRHAGE [None]
